FAERS Safety Report 14942008 (Version 2)
Quarter: 2018Q2

REPORT INFORMATION
  Report Type: Spontaneous
  Country: JP (occurrence: JP)
  Receive Date: 20180527
  Receipt Date: 20180527
  Transmission Date: 20180711
  Serious: Yes (Other)
  Sender: FDA-Public Use
  Company Number: PHHY2018JP008476

PATIENT
  Age: 61 Year
  Sex: Female
  Weight: 47.2 kg

DRUGS (8)
  1. PREDNISOLONE. [Suspect]
     Active Substance: PREDNISOLONE
     Dosage: 2 MG/M2, CYCLIC
     Route: 065
  2. VINCRISTINE [Suspect]
     Active Substance: VINCRISTINE
     Indication: BURKITT^S LYMPHOMA
     Dosage: 1.4 MG/M2, CYCLIC
     Route: 065
  3. PIRARUBICIN [Suspect]
     Active Substance: PIRARUBICIN
     Indication: BURKITT^S LYMPHOMA
     Dosage: 36 MG/M2, CYCLIC
     Route: 065
  4. CYCLOPHOSPHAMIDE. [Suspect]
     Active Substance: CYCLOPHOSPHAMIDE
     Indication: BURKITT^S LYMPHOMA
     Dosage: 750 MG/M2, CYCLIC
     Route: 065
  5. CYCLOPHOSPHAMIDE. [Suspect]
     Active Substance: CYCLOPHOSPHAMIDE
     Dosage: 540 MG/M2, CYCLIC
     Route: 065
  6. DOXORUBICIN [Suspect]
     Active Substance: DOXORUBICIN
     Indication: BURKITT^S LYMPHOMA
     Dosage: 50 MG/M2, CYCLIC
     Route: 065
  7. RITUXIMAB. [Suspect]
     Active Substance: RITUXIMAB
     Indication: BURKITT^S LYMPHOMA
     Dosage: 375 MG/M2, CYCLIC
     Route: 065
  8. PREDNISOLONE. [Suspect]
     Active Substance: PREDNISOLONE
     Indication: BURKITT^S LYMPHOMA
     Dosage: 1 MG/KG, CYCLIC
     Route: 065

REACTIONS (4)
  - Subarachnoid haemorrhage [Unknown]
  - Pulmonary thrombosis [Unknown]
  - Neutropenia [Unknown]
  - Deep vein thrombosis [Unknown]
